FAERS Safety Report 4685197-0 (Version None)
Quarter: 2005Q2

REPORT INFORMATION
  Report Type: 
  Country: None (occurrence: None)
  Receive Date: 20050603
  Receipt Date: 20050520
  Transmission Date: 20051028
  Serious: Yes (Hospitalization, Other)
  Sender: FDA-Public Use
  Company Number: 2005-0007991

PATIENT
  Age: 35 Year
  Sex: Male
  Weight: 121 kg

DRUGS (5)
  1. VIREAD [Suspect]
     Indication: HIV INFECTION
     Dosage: 300 MG, 1 IN 1 D, ORAL
     Route: 048
     Dates: start: 20031128
  2. EFAVIRENZ [Concomitant]
  3. LAMIVUDINE [Suspect]
  4. CELEBREX [Concomitant]
  5. FACTOR VII (FACTOR VIII (ANTIHAEMOPHILIC FACTOR) [Concomitant]

REACTIONS (3)
  - HYDRONEPHROSIS [None]
  - NEPHROLITHIASIS [None]
  - RENAL FAILURE ACUTE [None]
